FAERS Safety Report 24542168 (Version 3)
Quarter: 2024Q4

REPORT INFORMATION
  Report Type: Spontaneous
  Country: US (occurrence: US)
  Receive Date: 20241023
  Receipt Date: 20241116
  Transmission Date: 20250115
  Serious: No
  Sender: UNITED THERAPEUTICS
  Company Number: US-UNITED THERAPEUTICS-UNT-2024-033512

PATIENT
  Sex: Female
  Weight: 86.168 kg

DRUGS (22)
  1. TYVASO DPI [Suspect]
     Active Substance: TREPROSTINIL
     Indication: Pulmonary arterial hypertension
     Dosage: 16 ?G, QID
     Dates: start: 2024, end: 2024
  2. TYVASO DPI [Suspect]
     Active Substance: TREPROSTINIL
     Dosage: 48 ?G, QID
     Dates: start: 2024, end: 2024
  3. TYVASO DPI [Suspect]
     Active Substance: TREPROSTINIL
     Dosage: 64 ?G, QID
     Dates: start: 2024
  4. TYVASO DPI [Suspect]
     Active Substance: TREPROSTINIL
     Dosage: UNK
  5. TYVASO DPI [Suspect]
     Active Substance: TREPROSTINIL
     Indication: Pulmonary arterial hypertension
     Dosage: UNK
  6. TYVASO DPI [Suspect]
     Active Substance: TREPROSTINIL
     Indication: Pulmonary arterial hypertension
     Dosage: UNK
  7. TYVASO DPI [Suspect]
     Active Substance: TREPROSTINIL
     Indication: Pulmonary arterial hypertension
     Dosage: UNK
  8. UPTRAVI [Suspect]
     Active Substance: SELEXIPAG
     Indication: Product used for unknown indication
     Dosage: UNK
  9. ADEMPAS [Suspect]
     Active Substance: RIOCIGUAT
     Indication: Product used for unknown indication
     Dosage: 2.5 MG, UNK
  10. ADEMPAS [Suspect]
     Active Substance: RIOCIGUAT
     Dosage: 2 MG, TID
     Dates: start: 2024
  11. NASACORT [Concomitant]
     Active Substance: TRIAMCINOLONE ACETONIDE
     Indication: Product used for unknown indication
     Dosage: UNK
  12. AMBRISENTAN [Concomitant]
     Active Substance: AMBRISENTAN
     Indication: Product used for unknown indication
     Dosage: UNK
  13. CLARITIN [Concomitant]
     Active Substance: LORATADINE
     Indication: Product used for unknown indication
     Dosage: UNK
  14. TYLENOL EXTRA STRENGTH [Concomitant]
     Active Substance: ACETAMINOPHEN
     Indication: Product used for unknown indication
     Dosage: UNK
  15. ALLEGRA ALLERGY [Concomitant]
     Active Substance: FEXOFENADINE HYDROCHLORIDE
     Indication: Product used for unknown indication
     Dosage: UNK
  16. PROBIOTICS NOS [Concomitant]
     Active Substance: PROBIOTICS NOS
     Indication: Product used for unknown indication
     Dosage: UNK
  17. VITAMIN D3 [Concomitant]
     Active Substance: CHOLECALCIFEROL
     Indication: Product used for unknown indication
     Dosage: UNK
  18. PEPCID AC [Concomitant]
     Active Substance: FAMOTIDINE
     Indication: Product used for unknown indication
     Dosage: UNK
  19. PREGABALIN [Concomitant]
     Active Substance: PREGABALIN
     Indication: Product used for unknown indication
     Dosage: UNK
  20. BENZOYL PEROXIDE\CLINDAMYCIN PHOSPHATE [Concomitant]
     Active Substance: BENZOYL PEROXIDE\CLINDAMYCIN PHOSPHATE
     Indication: Product used for unknown indication
     Dosage: UNK
  21. RETAINE MGD [Concomitant]
     Active Substance: LIGHT MINERAL OIL\MINERAL OIL
     Indication: Product used for unknown indication
     Dosage: UNK
  22. MUCINEX DM [Concomitant]
     Active Substance: DEXTROMETHORPHAN HYDROBROMIDE\GUAIFENESIN
     Indication: Product used for unknown indication
     Dosage: UNK

REACTIONS (17)
  - Ear infection [Not Recovered/Not Resolved]
  - Throat clearing [Unknown]
  - Gastrooesophageal reflux disease [Unknown]
  - Nasal congestion [Not Recovered/Not Resolved]
  - Hypotension [Unknown]
  - Cough [Unknown]
  - Dizziness [Unknown]
  - Fatigue [Unknown]
  - Nausea [Unknown]
  - Flatulence [Unknown]
  - Abdominal distension [Unknown]
  - Lethargy [Unknown]
  - Asthenia [Unknown]
  - Throat irritation [Unknown]
  - Upper-airway cough syndrome [Unknown]
  - Upper respiratory tract infection [Recovered/Resolved]
  - Product deposit [Unknown]

NARRATIVE: CASE EVENT DATE: 20240101
